FAERS Safety Report 9142634 (Version 1)
Quarter: 2013Q1

REPORT INFORMATION
  Report Type: Spontaneous
  Country: MX (occurrence: MX)
  Receive Date: 20130306
  Receipt Date: 20130306
  Transmission Date: 20140127
  Serious: Yes (Other)
  Sender: FDA-Public Use
  Company Number: PHHY2013MX021668

PATIENT
  Age: 8 Year
  Sex: Female

DRUGS (1)
  1. TRILEPTAL [Suspect]
     Indication: CONVULSION
     Dosage: 2 ML, QD ((6G/100ML))
     Route: 048
     Dates: start: 201211

REACTIONS (2)
  - Gastric infection [Recovered/Resolved]
  - Platelet count decreased [Recovered/Resolved]
